FAERS Safety Report 10900271 (Version 1)
Quarter: 2015Q1

REPORT INFORMATION
  Report Type: Spontaneous
  Country: RS (occurrence: None)
  Receive Date: 20150303
  Receipt Date: 20150303
  Transmission Date: 20150721
  Serious: Yes (Other)
  Sender: FDA-Public Use
  Company Number: ABR_02071_2015

PATIENT
  Age: 64 Year
  Sex: Male

DRUGS (4)
  1. ERYTHROMYCIN (ERYTHROMYCIN) [Suspect]
     Active Substance: ERYTHROMYCIN
     Indication: BRONCHITIS
     Dates: start: 201301, end: 201301
  2. FLUPHENAZIE DECANOATE [Concomitant]
  3. LORAZEPAM. [Concomitant]
     Active Substance: LORAZEPAM
  4. CHLORPROMAZINE [Concomitant]
     Active Substance: CHLORPROMAZINE

REACTIONS (2)
  - Condition aggravated [None]
  - Schizoaffective disorder [None]

NARRATIVE: CASE EVENT DATE: 201301
